FAERS Safety Report 20902002 (Version 1)
Quarter: 2022Q2

REPORT INFORMATION
  Report Type: Spontaneous
  Country: US (occurrence: None)
  Receive Date: 20220601
  Receipt Date: 20220601
  Transmission Date: 20220721
  Serious: Yes (Hospitalization)
  Sender: FDA-Public Use
  Company Number: None

PATIENT
  Age: 34 Year
  Sex: Female

DRUGS (9)
  1. SILDENAFIL [Suspect]
     Active Substance: SILDENAFIL
     Indication: Pulmonary arterial hypertension
     Dosage: FREQUENCY : AS DIRECTED;?
     Route: 048
     Dates: start: 20211111
  2. FUROSEMIDE TAB [Concomitant]
  3. KLOR-CON [Concomitant]
     Active Substance: POTASSIUM CHLORIDE
  4. LEVALBUTEROL NEB [Concomitant]
  5. LOSARTAN POT TAB [Concomitant]
  6. SILDENAFIL [Concomitant]
     Active Substance: SILDENAFIL
  7. SPIRONOLACT TAB [Concomitant]
  8. SYMBICORT AER [Concomitant]
  9. DIGITEK [Concomitant]
     Active Substance: DIGOXIN

REACTIONS (2)
  - Pneumonia [None]
  - Syncope [None]

NARRATIVE: CASE EVENT DATE: 20220509
